FAERS Safety Report 24550317 (Version 4)
Quarter: 2025Q1

REPORT INFORMATION
  Report Type: Report from Study
  Country: US (occurrence: US)
  Receive Date: 20241025
  Receipt Date: 20250113
  Transmission Date: 20250409
  Serious: No
  Sender: SUNOVION
  Company Number: US-SUMITOMO PHARMA SWITZERLAND GMBH-2024SPA004193

PATIENT

DRUGS (2)
  1. ORGOVYX [Suspect]
     Active Substance: RELUGOLIX
     Indication: Prostate cancer
     Route: 048
     Dates: start: 20241004, end: 20241004
  2. ORGOVYX [Suspect]
     Active Substance: RELUGOLIX
     Dosage: 120 MG, QD
     Route: 048
     Dates: start: 20241005

REACTIONS (13)
  - Brain fog [Unknown]
  - Muscle spasms [Unknown]
  - Burning sensation [Unknown]
  - Paraesthesia [Unknown]
  - Pain [Unknown]
  - Palpitations [Unknown]
  - Osteopenia [Unknown]
  - Anxiety [Unknown]
  - Chest discomfort [Unknown]
  - Back pain [Unknown]
  - Constipation [Unknown]
  - Hot flush [Unknown]
  - Pain in extremity [Unknown]
